FAERS Safety Report 5279729-1 (Version None)
Quarter: 2007Q1

REPORT INFORMATION
  Report Type: 
  Country: None (occurrence: None)
  Receive Date: 20061213
  Receipt Date: 20060220
  Transmission Date: 20070707
  Serious: No
  Sender: FDA-Public Use
  Company Number: 2006UW00973

PATIENT
  Sex: Male
  Weight: 124.7392 kg

DRUGS (4)
  1. SEROQUEL [Suspect]
     Indication: BIPOLAR DISORDER
     Dosage: 400 MG DAILY PO
     Route: 048
  2. LANTUS [Concomitant]
  3. INSULIN HUMULIN [Concomitant]
  4. ACTOS [Concomitant]

REACTIONS (1)
  - HYPERGLYCAEMIA [None]
